FAERS Safety Report 24665867 (Version 2)
Quarter: 2024Q4

REPORT INFORMATION
  Report Type: Report from Study
  Country: US (occurrence: US)
  Receive Date: 20241126
  Receipt Date: 20241212
  Transmission Date: 20250115
  Serious: Yes (Other)
  Sender: ABBVIE
  Company Number: US-ABBVIE-6011937

PATIENT
  Age: 79 Year
  Sex: Female
  Weight: 67.132 kg

DRUGS (12)
  1. CREON [Suspect]
     Active Substance: PANCRELIPASE AMYLASE\PANCRELIPASE LIPASE\PANCRELIPASE PROTEASE
     Indication: Pancreatic failure
     Dosage: ONE CAPSULE 3 TIMES A DAY.
     Route: 048
  2. CREON [Suspect]
     Active Substance: PANCRELIPASE AMYLASE\PANCRELIPASE LIPASE\PANCRELIPASE PROTEASE
     Indication: Pancreatic failure
     Dosage: TAKE BY MOUTH 1 CAPS WITH BREAKFAST, 1 CAPS WITH LUNCH, 1 CAPS WITH DINNER, AND 1 CAPS WITH SNACKS
     Route: 048
     Dates: start: 2019, end: 20241009
  3. FAMOTIDINE [Concomitant]
     Active Substance: FAMOTIDINE
     Indication: Gastrointestinal disorder
     Dates: start: 20241117
  4. ALBUTEROL [Concomitant]
     Active Substance: ALBUTEROL
     Indication: Asthma
     Dates: start: 202405
  5. FERROUS SULFATE ANHYDROUS [Concomitant]
     Active Substance: FERROUS SULFATE ANHYDROUS
     Indication: Blood iron decreased
     Dosage: EVERY OTHER DAY
     Dates: start: 20241117
  6. MONTELUKAST [Concomitant]
     Active Substance: MONTELUKAST
     Indication: Multiple allergies
     Dosage: GENERIC FOR SINGULAR MONTELUKAST 10MG 1 A DAY
     Route: 065
     Dates: start: 20241117
  7. AMLODIPINE [Concomitant]
     Active Substance: AMLODIPINE BESYLATE
     Indication: Product used for unknown indication
     Dates: start: 20241117
  8. LOSARTAN [Concomitant]
     Active Substance: LOSARTAN
     Indication: Blood pressure measurement
     Route: 048
  9. LOSARTAN [Concomitant]
     Active Substance: LOSARTAN
     Indication: Blood pressure measurement
     Dates: start: 20241117
  10. AMOXICILLIN [Concomitant]
     Active Substance: AMOXICILLIN
     Indication: Product used for unknown indication
     Dates: start: 20241117
  11. VITAMIN D2 [Concomitant]
     Active Substance: ERGOCALCIFEROL
     Indication: Vitamin D decreased
     Dosage: (ERGO) 50,000 UNITS ONCE A WEEK ON A SUNDAY
     Dates: start: 20241117
  12. ASPIRIN [Concomitant]
     Active Substance: ASPIRIN
     Indication: Paraesthesia oral
     Dosage: BABY ASPERIN TAKES EVERY DAY BESIDES WHEN HAS SURGERY UNLESS?BRUISING TOO MUCH THEN CUTS IT BACK?...
     Dates: start: 1999

REACTIONS (15)
  - Pancreatic carcinoma [Recovering/Resolving]
  - Pancreatic enzymes decreased [Unknown]
  - Abdominal pain upper [Recovering/Resolving]
  - Constipation [Unknown]
  - Blood pressure increased [Unknown]
  - Flatulence [Unknown]
  - Abdominal discomfort [Recovering/Resolving]
  - Nephrolithiasis [Unknown]
  - Asthma [Unknown]
  - Influenza [Unknown]
  - Sinusitis [Unknown]
  - COVID-19 [Unknown]
  - Enzyme level decreased [Unknown]
  - Drug level decreased [Unknown]
  - Pain [Unknown]

NARRATIVE: CASE EVENT DATE: 20190101
